FAERS Safety Report 26032472 (Version 1)
Quarter: 2025Q4

REPORT INFORMATION
  Report Type: Spontaneous
  Country: US (occurrence: US)
  Receive Date: 20251112
  Receipt Date: 20251112
  Transmission Date: 20260118
  Serious: No
  Sender: AZURITY PHARMACEUTICALS
  Company Number: US-AZURITY PHARMACEUTICALS, INC.-AZR202502-000559

PATIENT
  Age: 10 Year
  Sex: Male

DRUGS (1)
  1. ZENZEDI [Suspect]
     Active Substance: DEXTROAMPHETAMINE SULFATE
     Indication: Attention deficit hyperactivity disorder
     Dosage: 4 DOSAGE FORM (30 MILLIGRAM), QD
     Route: 065

REACTIONS (1)
  - Incorrect dose administered [Unknown]
